FAERS Safety Report 5515683-2 (Version None)
Quarter: 2007Q4

REPORT INFORMATION
  Report Type: 
  Country: None (occurrence: None)
  Receive Date: 20071113
  Receipt Date: 20070824
  Transmission Date: 20080405
  Serious: No
  Sender: FDA-Public Use
  Company Number: A0673912A

PATIENT
  Sex: Female

DRUGS (2)
  1. COREG [Suspect]
     Indication: CARDIAC FAILURE
     Route: 048
     Dates: start: 20070804
  2. ALTACE [Concomitant]
     Indication: CARDIAC FAILURE
     Route: 065
     Dates: start: 20070101

REACTIONS (5)
  - EAR PAIN [None]
  - GLOSSODYNIA [None]
  - MOUTH ULCERATION [None]
  - ORAL DISORDER [None]
  - PHARYNGOLARYNGEAL PAIN [None]
